FAERS Safety Report 25259997 (Version 2)
Quarter: 2025Q2

REPORT INFORMATION
  Report Type: Report from Study
  Country: CA (occurrence: CA)
  Receive Date: 20250501
  Receipt Date: 20250527
  Transmission Date: 20250717
  Serious: Yes (Other)
  Sender: OTSUKA
  Company Number: CA-MMM-Otsuka-KW2R7Q9A

PATIENT
  Age: 56 Year
  Sex: Male

DRUGS (3)
  1. TOLVAPTAN [Suspect]
     Active Substance: TOLVAPTAN
     Indication: Congenital cystic kidney disease
     Dosage: 45 MG, DAILY
     Route: 048
     Dates: start: 20250321
  2. TOLVAPTAN [Suspect]
     Active Substance: TOLVAPTAN
     Dosage: 15 MG, DAILY
     Route: 048
     Dates: start: 20250321
  3. TOLVAPTAN [Suspect]
     Active Substance: TOLVAPTAN
     Dosage: 15 MG, QD (IN THE MORNING)
     Route: 065
     Dates: start: 2025

REACTIONS (5)
  - Urinary retention [Unknown]
  - Dysuria [Unknown]
  - Hyperhidrosis [Unknown]
  - Pollakiuria [Unknown]
  - Incorrect dose administered [Unknown]

NARRATIVE: CASE EVENT DATE: 20250401
